FAERS Safety Report 25722360 (Version 4)
Quarter: 2025Q4

REPORT INFORMATION
  Report Type: Spontaneous
  Country: NZ (occurrence: NZ)
  Receive Date: 20250825
  Receipt Date: 20251112
  Transmission Date: 20260119
  Serious: Yes (Other)
  Sender: MYLAN
  Company Number: NZ-MYLANLABS-2025M1016603

PATIENT
  Age: 68 Year
  Sex: Female

DRUGS (1)
  1. CLOZARIL [Suspect]
     Active Substance: CLOZAPINE
     Indication: Schizophrenia
     Dosage: UNK

REACTIONS (6)
  - Neutropenia [Unknown]
  - Haemoglobin decreased [Not Recovered/Not Resolved]
  - White blood cell count decreased [Recovering/Resolving]
  - Lymphocyte count decreased [Not Recovered/Not Resolved]
  - Monocyte count decreased [Not Recovered/Not Resolved]
  - Mean cell volume increased [Recovering/Resolving]

NARRATIVE: CASE EVENT DATE: 20250214
